FAERS Safety Report 8162052-5 (Version None)
Quarter: 2012Q1

REPORT INFORMATION
  Report Type: 
  Country: None (occurrence: None)
  Receive Date: 20120224
  Receipt Date: 20110705
  Transmission Date: 20120608
  Serious: No
  Sender: FDA-Public Use
  Company Number: US-BRISTOL-MYERS SQUIBB COMPANY-15802614

PATIENT
  Age: 64 Year
  Sex: Male

DRUGS (2)
  1. LANTUS [Suspect]
     Indication: TYPE 2 DIABETES MELLITUS
     Dosage: 1DF:15 UNITS IN AFTERNOON,25 UNITS IN EVENING
     Route: 058
     Dates: start: 20020101
  2. METFORMIN HCL [Suspect]
     Indication: TYPE 2 DIABETES MELLITUS
     Dosage: PARENTERAL/INJ,SOLN. 1DF:100 IU/ML
     Dates: start: 20020101

REACTIONS (2)
  - DIABETES MELLITUS INADEQUATE CONTROL [None]
  - MEMORY IMPAIRMENT [None]
